FAERS Safety Report 7905609-6 (Version None)
Quarter: 2011Q4

REPORT INFORMATION
  Report Type: 
  Country: None (occurrence: None)
  Receive Date: 20111110
  Receipt Date: 20111101
  Transmission Date: 20120403
  Serious: No
  Sender: FDA-Public Use
  Company Number: US-BIOGENIDEC-2011BI041963

PATIENT
  Age: 34 Year
  Sex: Female

DRUGS (1)
  1. TYSABRI [Suspect]
     Indication: MULTIPLE SCLEROSIS
     Route: 042
     Dates: start: 20111017

REACTIONS (5)
  - MUSCULOSKELETAL DISORDER [None]
  - MALAISE [None]
  - GAIT DISTURBANCE [None]
  - VISUAL IMPAIRMENT [None]
  - DECREASED APPETITE [None]
